FAERS Safety Report 8722485 (Version 3)
Quarter: 2012Q4

REPORT INFORMATION
  Report Type: Report from Study
  Country: US (occurrence: US)
  Receive Date: 20120814
  Receipt Date: 20120922
  Transmission Date: 20130627
  Serious: Yes (Hospitalization)
  Sender: FDA-Public Use
  Company Number: US-ABBOTT-12P-163-0967342-00

PATIENT
  Age: 48 None
  Sex: Male
  Weight: 102.15 kg

DRUGS (4)
  1. HUMIRA 40 MG/ 0.8 ML PRE-FILLED SYRINGE [Suspect]
     Indication: CROHN^S DISEASE
     Dates: start: 2009, end: 20101220
  2. LIPITOR [Concomitant]
     Indication: HYPERLIPIDAEMIA
  3. GLYBURIDE [Concomitant]
     Indication: DIABETES MELLITUS
  4. XANAX [Concomitant]
     Indication: ANXIETY

REACTIONS (4)
  - Anal fistula [Recovered/Resolved]
  - Infection [Recovered/Resolved]
  - Weight decreased [Recovered/Resolved]
  - Hypophagia [Unknown]
